FAERS Safety Report 19269998 (Version 1)
Quarter: 2021Q2

REPORT INFORMATION
  Report Type: Spontaneous
  Country: TW (occurrence: TW)
  Receive Date: 20210518
  Receipt Date: 20210518
  Transmission Date: 20210717
  Serious: Yes (Other)
  Sender: FDA-Public Use
  Company Number: TW-ASTELLAS-2021US017862

PATIENT
  Sex: Female

DRUGS (2)
  1. XOSPATA [Suspect]
     Active Substance: GILTERITINIB
     Route: 048
     Dates: start: 2021
  2. XOSPATA [Suspect]
     Active Substance: GILTERITINIB
     Indication: LEUKAEMIA
     Route: 048
     Dates: start: 201911

REACTIONS (3)
  - Leukaemia recurrent [Unknown]
  - Product supply issue [Unknown]
  - Underdose [Unknown]
